FAERS Safety Report 14191784 (Version 5)
Quarter: 2018Q2

REPORT INFORMATION
  Report Type: Report from Study
  Country: DE (occurrence: DE)
  Receive Date: 20171115
  Receipt Date: 20180403
  Transmission Date: 20180711
  Serious: Yes (Hospitalization)
  Sender: FDA-Public Use
  Company Number: DE-BIOGEN-2017BI00483543

PATIENT
  Age: 30 Year
  Sex: Female

DRUGS (8)
  1. VITAMIN B12 [Concomitant]
     Active Substance: CYANOCOBALAMIN
     Indication: VITAMIN B12 DEFICIENCY
     Dosage: DAILY DOSE: 1000 MICROGRAM EVERY MONTH
     Route: 030
  2. TOLPERISON [Concomitant]
     Active Substance: TOLPERISONE HYDROCHLORIDE
     Indication: MUSCLE SPASTICITY
     Dosage: DAILY DOSE: 300 MG MILLGRAM(S) EVERY DAYS
     Route: 065
     Dates: start: 20100101
  3. VITAMIN D3 [Concomitant]
     Active Substance: CHOLECALCIFEROL
     Indication: PROPHYLAXIS
     Route: 065
  4. BACLOFEN. [Concomitant]
     Active Substance: BACLOFEN
     Indication: MUSCLE SPASTICITY
     Dosage: DAILY DOSE: 10 MG MILLGRAM(S) EVERY DAYS
     Route: 065
     Dates: start: 20170401
  5. LYRICA [Concomitant]
     Active Substance: PREGABALIN
     Indication: PARAESTHESIA
     Route: 065
     Dates: start: 20100101
  6. TYSABRI [Suspect]
     Active Substance: NATALIZUMAB
     Indication: PRODUCT USED FOR UNKNOWN INDICATION
     Dosage: DAILY DOSE: 300 MG MILLGRAM(S) EVERY 4 WEEKS
     Route: 065
     Dates: start: 20110808
  7. RESTEX [Concomitant]
     Active Substance: BENSERAZIDE\LEVODOPA
     Indication: RESTLESS LEGS SYNDROME
     Dosage: 100/25, RET; 0-0-1; 0-0-0-1
     Route: 065
  8. FOLSAN [Concomitant]
     Active Substance: FOLIC ACID
     Indication: VITAMIN B12 DEFICIENCY
     Dosage: DAILY DOSE: 5 MG MILLGRAM(S) EVERY DAYS
     Route: 065

REACTIONS (1)
  - Herpes zoster oticus [Recovered/Resolved]

NARRATIVE: CASE EVENT DATE: 20170529
